FAERS Safety Report 15499841 (Version 1)
Quarter: 2018Q4

REPORT INFORMATION
  Report Type: Spontaneous
  Country: CN (occurrence: CN)
  Receive Date: 20181015
  Receipt Date: 20181015
  Transmission Date: 20190205
  Serious: Yes (Other)
  Sender: FDA-Public Use
  Company Number: CN-HQ SPECIALTY-CN-2018INT000197

PATIENT

DRUGS (3)
  1. RADIOTHERAPY [Suspect]
     Active Substance: RADIATION THERAPY
     Indication: NASOPHARYNGEAL CANCER
     Dosage: UNK
  2. CISPLATIN. [Suspect]
     Active Substance: CISPLATIN
     Dosage: 80-100 MG/M2, ON DAYS 1, 22 AND 43
     Route: 065
  3. CISPLATIN. [Suspect]
     Active Substance: CISPLATIN
     Indication: NASOPHARYNGEAL CANCER
     Dosage: 30-40 MG/M2, WEEKLY
     Route: 065

REACTIONS (1)
  - Stomatitis [Unknown]
